FAERS Safety Report 9292173 (Version 1)
Quarter: 2013Q2

REPORT INFORMATION
  Report Type: Report from Study
  Country: ES (occurrence: ES)
  Receive Date: 20130516
  Receipt Date: 20130516
  Transmission Date: 20140414
  Serious: Yes (Hospitalization, Other)
  Sender: FDA-Public Use
  Company Number: ES-ROCHE-1223044

PATIENT
  Age: 45 Year
  Sex: Female

DRUGS (2)
  1. CELLCEPT [Suspect]
     Indication: LUNG TRANSPLANT
     Route: 065
  2. CICLOSPORINE [Suspect]
     Indication: LUNG TRANSPLANT
     Route: 065

REACTIONS (10)
  - Dyspnoea [Unknown]
  - Lung infection [Unknown]
  - Metabolic acidosis [Unknown]
  - Deep vein thrombosis [Unknown]
  - Renal failure chronic [Unknown]
  - Respiratory failure [Unknown]
  - Pneumonia [Unknown]
  - Lung infiltration [Unknown]
  - Pulmonary alveolar haemorrhage [Unknown]
  - Transplant rejection [Recovering/Resolving]
